FAERS Safety Report 10064706 (Version 3)
Quarter: 2015Q3

REPORT INFORMATION
  Report Type: Spontaneous
  Country: US (occurrence: US)
  Receive Date: 20140408
  Receipt Date: 20150803
  Transmission Date: 20151125
  Serious: Yes (Death, Life-Threatening, Hospitalization, Other)
  Sender: FDA-Public Use
  Company Number: US-MERCK-1404USA003923

PATIENT
  Sex: Male
  Weight: 90.7 kg

DRUGS (2)
  1. JANUMET [Suspect]
     Active Substance: METFORMIN HYDROCHLORIDE\SITAGLIPTIN PHOSPHATE
     Indication: TYPE 2 DIABETES MELLITUS
     Dosage: 50-1000 MG, QD
     Route: 048
     Dates: start: 20071210, end: 20081004
  2. JANUVIA [Suspect]
     Active Substance: SITAGLIPTIN PHOSPHATE
     Indication: TYPE 2 DIABETES MELLITUS
     Dosage: 50 MG, QD
     Route: 048
     Dates: start: 20080904, end: 20081004

REACTIONS (10)
  - Pancreatic carcinoma metastatic [Unknown]
  - Death [Fatal]
  - Inappropriate schedule of drug administration [Unknown]
  - Chest pain [Recovered/Resolved]
  - Constipation [Recovering/Resolving]
  - Hypercholesterolaemia [Unknown]
  - Hypertrophic cardiomyopathy [Unknown]
  - Mitral valve incompetence [Unknown]
  - Metastases to liver [Unknown]
  - Hypertension [Unknown]

NARRATIVE: CASE EVENT DATE: 20071210
